FAERS Safety Report 23619455 (Version 2)
Quarter: 2024Q1

REPORT INFORMATION
  Report Type: Spontaneous
  Country: US (occurrence: US)
  Receive Date: 20240311
  Receipt Date: 20240317
  Transmission Date: 20240410
  Serious: No
  Sender: FDA-Public Use
  Company Number: US-AMGEN-USASP2024049955

PATIENT
  Age: 72 Year
  Sex: Female

DRUGS (2)
  1. PROLIA [Suspect]
     Active Substance: DENOSUMAB
     Indication: Osteoporosis
     Dosage: 60 MILLIGRAM, Q6MO
     Route: 065
     Dates: start: 2010
  2. LINZESS [Concomitant]
     Active Substance: LINACLOTIDE
     Indication: Abdominal discomfort
     Dosage: UNK
     Dates: start: 2010

REACTIONS (11)
  - Muscular weakness [Not Recovered/Not Resolved]
  - Dizziness [Recovering/Resolving]
  - Injection site urticaria [Unknown]
  - Injection site swelling [Unknown]
  - Localised infection [Recovering/Resolving]
  - Gait inability [Recovering/Resolving]
  - Pyrexia [Recovering/Resolving]
  - Injection site erythema [Recovering/Resolving]
  - Drug ineffective [Unknown]
  - Contusion [Unknown]
  - Fear [Unknown]

NARRATIVE: CASE EVENT DATE: 20231227
